FAERS Safety Report 18518919 (Version 1)
Quarter: 2020Q4

REPORT INFORMATION
  Report Type: Spontaneous
  Country: US (occurrence: US)
  Receive Date: 20201118
  Receipt Date: 20201118
  Transmission Date: 20210114
  Serious: No
  Sender: FDA-Public Use
  Company Number: US-JACOBUS PHARMACEUTICAL COMPANY, INC.-2096069

PATIENT
  Age: 55 Year
  Sex: Female

DRUGS (6)
  1. BIOTIN [Concomitant]
     Active Substance: BIOTIN
  2. SUDAFED [Concomitant]
     Active Substance: PSEUDOEPHEDRINE HYDROCHLORIDE
  3. RUZURGI [Suspect]
     Active Substance: AMIFAMPRIDINE
     Indication: MYASTHENIC SYNDROME
     Route: 048
     Dates: start: 20200525
  4. PYRIDOSTIGMINE BROMIDE. [Concomitant]
     Active Substance: PYRIDOSTIGMINE BROMIDE
  5. VITAMIN D [Concomitant]
     Active Substance: VITAMIN D NOS
  6. C-BI-EST-PROGESTERONE [Concomitant]

REACTIONS (1)
  - Eosinophil count increased [Unknown]

NARRATIVE: CASE EVENT DATE: 20200612
